FAERS Safety Report 7953481-0 (Version None)
Quarter: 2011Q4

REPORT INFORMATION
  Report Type: 
  Country: None (occurrence: None)
  Receive Date: 20111202
  Receipt Date: 20111129
  Transmission Date: 20120403
  Serious: No
  Sender: FDA-Public Use
  Company Number: US-PFIZER INC-2011291450

PATIENT
  Sex: Female

DRUGS (1)
  1. EFFEXOR [Suspect]
     Dosage: UNK

REACTIONS (5)
  - OEDEMA PERIPHERAL [None]
  - COUGH [None]
  - DRY THROAT [None]
  - MALAISE [None]
  - CONSTIPATION [None]
